FAERS Safety Report 8261125-6 (Version None)
Quarter: 2012Q2

REPORT INFORMATION
  Report Type: 
  Country: None (occurrence: None)
  Receive Date: 20120405
  Receipt Date: 20120402
  Transmission Date: 20120825
  Serious: Yes (Death, Hospitalization, Other)
  Sender: FDA-Public Use
  Company Number: PHEH2009US08940

PATIENT
  Sex: Female

DRUGS (35)
  1. MEGACE [Concomitant]
  2. METRONIDAZOLE [Concomitant]
  3. CIPROFLOXACIN [Concomitant]
  4. ALPHAGAN [Concomitant]
  5. DECADRON [Concomitant]
     Dosage: 10 MG, UNK
     Route: 042
  6. FAMOTIDINE [Concomitant]
  7. TYLENOL [Concomitant]
  8. LIPITOR [Concomitant]
  9. ZOMETA [Suspect]
     Indication: BREAST CANCER METASTATIC
     Dosage: 4 MG, MONTHLY
     Dates: start: 20030101, end: 20070801
  10. AVASTIN [Concomitant]
  11. CEPHALEXIN [Concomitant]
  12. XELODA [Concomitant]
  13. COSOPT [Concomitant]
  14. FEMARA [Concomitant]
  15. BENADRYL [Concomitant]
     Dosage: 25 MG, UNK
  16. AMIODARONE HCL [Concomitant]
  17. WARFARIN SODIUM [Concomitant]
  18. TAXOTERE [Concomitant]
     Dosage: 48 MG, UNK
     Route: 042
  19. ARIMIDEX [Concomitant]
  20. NEXIUM [Concomitant]
  21. PERIOSTAT [Concomitant]
  22. FASLODEX [Concomitant]
     Dosage: 250 MG, QMO
     Route: 030
  23. VYTORIN [Concomitant]
  24. IPRATROPIUM [Concomitant]
  25. LUNESTA [Concomitant]
  26. DIGOXIN [Concomitant]
  27. ENALAPRIL [Concomitant]
  28. LORAZEPAM [Concomitant]
  29. PERIDEX [Concomitant]
  30. COUMADIN [Concomitant]
  31. PREDNISONE TAB [Concomitant]
  32. ZOFRAN [Concomitant]
     Dosage: 32 MG, UNK
     Route: 042
  33. LOPRESSOR [Concomitant]
  34. XALATAN [Concomitant]
  35. ALBUTEROL [Concomitant]

REACTIONS (73)
  - JAW DISORDER [None]
  - OESOPHAGEAL OBSTRUCTION [None]
  - HEPATIC LESION [None]
  - CARDIOMYOPATHY [None]
  - HYPERLIPIDAEMIA [None]
  - SPLENOMEGALY [None]
  - METASTATIC LYMPHOMA [None]
  - PHLEBITIS [None]
  - LARYNGITIS [None]
  - JOINT SWELLING [None]
  - CONSTIPATION [None]
  - PAIN [None]
  - GINGIVAL SWELLING [None]
  - LUNG NEOPLASM [None]
  - MUSCULOSKELETAL PAIN [None]
  - LYMPHOMA [None]
  - LUNG INFILTRATION [None]
  - HYDROPNEUMOTHORAX [None]
  - VOCAL CORD PARALYSIS [None]
  - PARONYCHIA [None]
  - INFECTION [None]
  - HYPOPHAGIA [None]
  - NEOPLASM MALIGNANT [None]
  - SUPERIOR VENA CAVA SYNDROME [None]
  - RENAL CYST [None]
  - ABDOMINAL HERNIA [None]
  - GAIT DISTURBANCE [None]
  - GINGIVAL PAIN [None]
  - ASCITES [None]
  - OSTEONECROSIS OF JAW [None]
  - EXPOSED BONE IN JAW [None]
  - GINGIVAL INFECTION [None]
  - METASTASES TO LIVER [None]
  - RETINAL SCAR [None]
  - OESOPHAGEAL STENOSIS [None]
  - WEIGHT DECREASED [None]
  - OSTEORADIONECROSIS [None]
  - GENERAL PHYSICAL HEALTH DETERIORATION [None]
  - GLAUCOMA [None]
  - VISUAL IMPAIRMENT [None]
  - MACULAR DEGENERATION [None]
  - PLEURAL EFFUSION [None]
  - BURSITIS [None]
  - HEPATIC CYST [None]
  - DEEP VEIN THROMBOSIS [None]
  - HIATUS HERNIA [None]
  - HYPOTHYROIDISM [None]
  - IRON DEFICIENCY ANAEMIA [None]
  - BACTERAEMIA [None]
  - URINARY TRACT INFECTION [None]
  - ARTHRALGIA [None]
  - ABDOMINAL DISTENSION [None]
  - EAR PAIN [None]
  - GASTROOESOPHAGEAL REFLUX DISEASE [None]
  - SKIN CANCER [None]
  - ROTATOR CUFF SYNDROME [None]
  - THROMBOCYTOPENIA [None]
  - OSTEOPENIA [None]
  - METASTASES TO BONE [None]
  - HEPATIC STEATOSIS [None]
  - TACHYCARDIA [None]
  - DEFORMITY [None]
  - LOOSE TOOTH [None]
  - OSTEOLYSIS [None]
  - OESOPHAGEAL FOOD IMPACTION [None]
  - MEDIASTINAL MASS [None]
  - LYMPHADENOPATHY [None]
  - PULMONARY OEDEMA [None]
  - AORTIC ARTERIOSCLEROSIS [None]
  - MITRAL VALVE CALCIFICATION [None]
  - INAPPROPRIATE ANTIDIURETIC HORMONE SECRETION [None]
  - DYSPHAGIA [None]
  - DYSPNOEA [None]
